FAERS Safety Report 5207054-3 (Version None)
Quarter: 2007Q1

REPORT INFORMATION
  Report Type: 
  Country: None (occurrence: None)
  Receive Date: 20070110
  Receipt Date: 20070104
  Transmission Date: 20070707
  Serious: Yes (Hospitalization)
  Sender: FDA-Public Use
  Company Number: S05-USA-04861-01

PATIENT
  Age: 27 Year
  Sex: Female

DRUGS (3)
  1. LEXAPRO [Suspect]
     Indication: POSTPARTUM DEPRESSION
     Dosage: 10 MG QD PO
     Route: 048
     Dates: start: 20041101
  2. LEXAPRO [Suspect]
     Indication: POSTPARTUM DEPRESSION
     Dosage: 10 MG QD PO
     Route: 048
     Dates: end: 20051031
  3. PRENATAL VITAMIN (NOS) [Concomitant]

REACTIONS (11)
  - ACOUSTIC STIMULATION TESTS ABNORMAL [None]
  - BRADYCARDIA NEONATAL [None]
  - CAESAREAN SECTION [None]
  - DIZZINESS [None]
  - DRUG EXPOSURE DURING PREGNANCY [None]
  - FEELING ABNORMAL [None]
  - INFECTION [None]
  - PARAESTHESIA [None]
  - PREGNANCY [None]
  - PREMATURE BABY [None]
  - PREMATURE RUPTURE OF MEMBRANES [None]
